FAERS Safety Report 4747941-3 (Version None)
Quarter: 2005Q3

REPORT INFORMATION
  Report Type: 
  Country: None (occurrence: None)
  Receive Date: 20050817
  Receipt Date: 20050804
  Transmission Date: 20060218
  Serious: Yes (Hospitalization)
  Sender: FDA-Public Use
  Company Number: 2005-DE-03043GD

PATIENT

DRUGS (1)
  1. MORPHINE [Suspect]
     Indication: POSTOPERATIVE ANALGESIA

REACTIONS (1)
  - RENAL FAILURE [None]
